FAERS Safety Report 6972001-0 (Version None)
Quarter: 2010Q3

REPORT INFORMATION
  Report Type: 
  Country: None (occurrence: None)
  Receive Date: 20100908
  Receipt Date: 20100908
  Transmission Date: 20110219
  Serious: Yes (Disabling)
  Sender: FDA-Public Use
  Company Number: None

PATIENT
  Sex: Male
  Weight: 78.0187 kg

DRUGS (1)
  1. ZOLADEX [Suspect]
     Dosage: TWO 10.8MG THREE MONTHS

REACTIONS (4)
  - BURNING SENSATION [None]
  - HOT FLUSH [None]
  - MALAISE [None]
  - NEUROPATHY PERIPHERAL [None]
